FAERS Safety Report 10510043 (Version 1)
Quarter: 2014Q4

REPORT INFORMATION
  Report Type: Spontaneous
  Country: US (occurrence: None)
  Receive Date: 20141009
  Receipt Date: 20141009
  Transmission Date: 20150528
  Serious: Yes (Disabling)
  Sender: FDA-Public Use
  Company Number: None

PATIENT
  Age: 52 Year
  Sex: Male
  Weight: 165.56 kg

DRUGS (1)
  1. FARXIGA [Suspect]
     Active Substance: DAPAGLIFLOZIN PROPANEDIOL
     Indication: DIABETES MELLITUS
     Dosage: 1 PILL ONCE DAILY BY MOUTH
     Route: 048
     Dates: start: 20140828, end: 20140926

REACTIONS (21)
  - Pain in extremity [None]
  - Headache [None]
  - Back pain [None]
  - Dysarthria [None]
  - Hunger [None]
  - Hyperhidrosis [None]
  - Pollakiuria [None]
  - Eye pruritus [None]
  - Deafness unilateral [None]
  - Dry mouth [None]
  - Tinnitus [None]
  - Euphoric mood [None]
  - Thirst [None]
  - Nightmare [None]
  - Pallor [None]
  - Pruritus genital [None]
  - Vision blurred [None]
  - Chills [None]
  - Vertigo [None]
  - Foreign body sensation in eyes [None]
  - Heart rate increased [None]

NARRATIVE: CASE EVENT DATE: 20140828
